FAERS Safety Report 4537578-3 (Version None)
Quarter: 2004Q4

REPORT INFORMATION
  Report Type: 
  Country: None (occurrence: None)
  Receive Date: 20041214
  Receipt Date: 20040426
  Transmission Date: 20050328
  Serious: Yes (Other)
  Sender: FDA-Public Use
  Company Number: 10053541-NC023564-0

PATIENT
  Age: 36 Year
  Sex: Female

DRUGS (4)
  1. VANCOMYCIN HCL [Suspect]
     Indication: PROPHYLAXIS
     Dosage: 1 GRAM
     Dates: start: 20040426
  2. 5% DEXTROSE AND LACTATED RINGER'S INJECTION [Concomitant]
  3. FENTANYL [Concomitant]
  4. MORPHINE [Concomitant]

REACTIONS (1)
  - RED MAN SYNDROME [None]
